FAERS Safety Report 24900101 (Version 1)
Quarter: 2025Q1

REPORT INFORMATION
  Report Type: Spontaneous
  Country: US (occurrence: US)
  Receive Date: 20250129
  Receipt Date: 20250129
  Transmission Date: 20250409
  Serious: Yes (Other)
  Sender: JOHNSON AND JOHNSON
  Company Number: US-JNJFOC-20250163159

PATIENT
  Age: 77 Year
  Sex: Male

DRUGS (1)
  1. STELARA [Suspect]
     Active Substance: USTEKINUMAB
     Indication: Colitis ulcerative
     Route: 040
     Dates: start: 20250116, end: 20250116

REACTIONS (5)
  - Pneumonia [Unknown]
  - Acute respiratory distress syndrome [Unknown]
  - Haematochezia [Unknown]
  - Abdominal pain [Unknown]
  - Feeling cold [Unknown]

NARRATIVE: CASE EVENT DATE: 20250101
